FAERS Safety Report 9036209 (Version 1)
Quarter: 2013Q1

REPORT INFORMATION
  Report Type: Spontaneous
  Country: US (occurrence: None)
  Receive Date: 20130117
  Receipt Date: 20130117
  Transmission Date: 20140127
  Serious: Yes (Hospitalization, Other)
  Sender: FDA-Public Use
  Company Number: None

PATIENT
  Age: 29 Year
  Sex: Female
  Weight: 74.84 kg

DRUGS (1)
  1. MIRENA IUD [Suspect]

REACTIONS (11)
  - Dyspareunia [None]
  - Menorrhagia [None]
  - Asthenia [None]
  - Dizziness [None]
  - Nausea [None]
  - Muscle spasms [None]
  - Urinary incontinence [None]
  - Loss of consciousness [None]
  - Device dislocation [None]
  - Uterine perforation [None]
  - Bladder perforation [None]
